FAERS Safety Report 11756765 (Version 1)
Quarter: 2015Q4

REPORT INFORMATION
  Report Type: Spontaneous
  Country: US (occurrence: US)
  Receive Date: 20151120
  Receipt Date: 20151120
  Transmission Date: 20160304
  Serious: No
  Sender: FDA-Public Use
  Company Number: US-TEVA-565362USA

PATIENT
  Sex: Female

DRUGS (1)
  1. MEGESTROL [Suspect]
     Active Substance: MEGESTROL
     Indication: ENDOMETRIAL HYPERPLASIA
     Route: 065
     Dates: start: 20150121, end: 20150420

REACTIONS (3)
  - Laboratory test abnormal [Unknown]
  - Amenorrhoea [Unknown]
  - Premenstrual syndrome [Unknown]

NARRATIVE: CASE EVENT DATE: 2015
